FAERS Safety Report 15549787 (Version 1)
Quarter: 2018Q4

REPORT INFORMATION
  Report Type: Spontaneous
  Country: GB (occurrence: GB)
  Receive Date: 20181025
  Receipt Date: 20181025
  Transmission Date: 20190205
  Serious: Yes (Other)
  Sender: FDA-Public Use
  Company Number: GB-DEXPHARM-20180805

PATIENT
  Age: 80 Year
  Sex: Male

DRUGS (7)
  1. CODEINE [Suspect]
     Active Substance: CODEINE
  2. ACCRETE D3 [Suspect]
     Active Substance: CALCIUM CARBONATE\CHOLECALCIFEROL
  3. LACTULOSE. [Suspect]
     Active Substance: LACTULOSE
  4. BISOPROLOL [Suspect]
     Active Substance: BISOPROLOL
  5. LANSOPRAZOLE. [Suspect]
     Active Substance: LANSOPRAZOLE
  6. ISOSORBIDE MONONITRATE. [Suspect]
     Active Substance: ISOSORBIDE MONONITRATE
  7. PREDNISOLONE. [Suspect]
     Active Substance: PREDNISOLONE

REACTIONS (1)
  - Hypotension [Unknown]

NARRATIVE: CASE EVENT DATE: 20180831
